FAERS Safety Report 8396033-3 (Version None)
Quarter: 2012Q2

REPORT INFORMATION
  Report Type: 
  Country: None (occurrence: None)
  Receive Date: 20120530
  Receipt Date: 20120529
  Transmission Date: 20120825
  Serious: No
  Sender: FDA-Public Use
  Company Number: US-PFIZER INC-2012129558

PATIENT
  Sex: Male
  Weight: 113 kg

DRUGS (4)
  1. PLAVIX [Concomitant]
     Indication: BLOOD CHOLESTEROL ABNORMAL
     Dosage: 25 MG, 1X/DAY
  2. LISINOPRIL [Concomitant]
     Indication: HYPERTENSION
     Dosage: 20 MG, 1X/DAY
  3. CELEBREX [Suspect]
     Indication: ARTHRALGIA
     Dosage: 200 MG, 1X/DAY
     Route: 048
     Dates: start: 20120512
  4. LOVASTATIN [Concomitant]
     Indication: BLOOD CHOLESTEROL ABNORMAL
     Dosage: 20 MG, 1X/DAY

REACTIONS (3)
  - PAIN IN EXTREMITY [None]
  - DRUG INEFFECTIVE [None]
  - DYSSTASIA [None]
